FAERS Safety Report 17984401 (Version 4)
Quarter: 2020Q3

REPORT INFORMATION
  Report Type: Spontaneous
  Country: DE (occurrence: DE)
  Receive Date: 20200706
  Receipt Date: 20200914
  Transmission Date: 20201103
  Serious: No
  Sender: FDA-Public Use
  Company Number: DE-JNJFOC-20200633319

PATIENT
  Age: 62 Year
  Sex: Female

DRUGS (3)
  1. DUROGESIC SMAT [Suspect]
     Active Substance: FENTANYL
     Indication: PRODUCT USED FOR UNKNOWN INDICATION
     Dosage: 50 MICROGRAM/HOUR?EXPIRY DATE: JUL?2020
     Route: 062
  2. DUROGESIC SMAT [Suspect]
     Active Substance: FENTANYL
  3. DUROGESIC SMAT [Suspect]
     Active Substance: FENTANYL

REACTIONS (3)
  - Therapeutic product effect decreased [Unknown]
  - Packaging design issue [Unknown]
  - Product packaging issue [Unknown]
